FAERS Safety Report 6510161-6 (Version None)
Quarter: 2009Q4

REPORT INFORMATION
  Report Type: 
  Country: None (occurrence: None)
  Receive Date: 20091222
  Receipt Date: 20091211
  Transmission Date: 20100525
  Serious: Yes (Hospitalization, Other)
  Sender: FDA-Public Use
  Company Number: RU-JNJFOC-20091003643

PATIENT
  Sex: Female
  Weight: 68 kg

DRUGS (57)
  1. GOLIMUMAB [Suspect]
     Route: 058
     Dates: start: 20061114, end: 20090916
  2. GOLIMUMAB [Suspect]
     Route: 058
     Dates: start: 20061114, end: 20090916
  3. GOLIMUMAB [Suspect]
     Route: 058
     Dates: start: 20061114, end: 20090916
  4. GOLIMUMAB [Suspect]
     Route: 058
     Dates: start: 20061114, end: 20090916
  5. GOLIMUMAB [Suspect]
     Route: 058
     Dates: start: 20061114, end: 20090916
  6. GOLIMUMAB [Suspect]
     Route: 058
     Dates: start: 20061114, end: 20090916
  7. GOLIMUMAB [Suspect]
     Route: 058
     Dates: start: 20061114, end: 20090916
  8. GOLIMUMAB [Suspect]
     Route: 058
     Dates: start: 20061114, end: 20090916
  9. GOLIMUMAB [Suspect]
     Route: 058
     Dates: start: 20061114, end: 20090916
  10. GOLIMUMAB [Suspect]
     Route: 058
     Dates: start: 20061114, end: 20090916
  11. GOLIMUMAB [Suspect]
     Route: 058
     Dates: start: 20061114, end: 20090916
  12. GOLIMUMAB [Suspect]
     Route: 058
     Dates: start: 20061114, end: 20090916
  13. GOLIMUMAB [Suspect]
     Route: 058
     Dates: start: 20061114, end: 20090916
  14. GOLIMUMAB [Suspect]
     Route: 058
     Dates: start: 20061114, end: 20090916
  15. GOLIMUMAB [Suspect]
     Route: 058
     Dates: start: 20061114, end: 20090916
  16. GOLIMUMAB [Suspect]
     Route: 058
     Dates: start: 20061114, end: 20090916
  17. GOLIMUMAB [Suspect]
     Route: 058
     Dates: start: 20061114, end: 20090916
  18. GOLIMUMAB [Suspect]
     Route: 058
     Dates: start: 20061114, end: 20090916
  19. GOLIMUMAB [Suspect]
     Route: 058
     Dates: start: 20061114, end: 20090916
  20. GOLIMUMAB [Suspect]
     Route: 058
     Dates: start: 20061114, end: 20090916
  21. GOLIMUMAB [Suspect]
     Route: 058
     Dates: start: 20061114, end: 20090916
  22. GOLIMUMAB [Suspect]
     Route: 058
     Dates: start: 20061114, end: 20090916
  23. GOLIMUMAB [Suspect]
     Route: 058
     Dates: start: 20061114, end: 20090916
  24. GOLIMUMAB [Suspect]
     Route: 058
     Dates: start: 20061114, end: 20090916
  25. GOLIMUMAB [Suspect]
     Route: 058
     Dates: start: 20061114, end: 20090916
  26. GOLIMUMAB [Suspect]
     Route: 058
     Dates: start: 20061114, end: 20090916
  27. GOLIMUMAB [Suspect]
     Route: 058
     Dates: start: 20061114, end: 20090916
  28. GOLIMUMAB [Suspect]
     Route: 058
     Dates: start: 20061114, end: 20090916
  29. GOLIMUMAB [Suspect]
     Route: 058
     Dates: start: 20061114, end: 20090916
  30. GOLIMUMAB [Suspect]
     Route: 058
     Dates: start: 20061114, end: 20090916
  31. GOLIMUMAB [Suspect]
     Route: 058
     Dates: start: 20061114, end: 20090916
  32. GOLIMUMAB [Suspect]
     Route: 058
     Dates: start: 20061114, end: 20090916
  33. GOLIMUMAB [Suspect]
     Route: 058
     Dates: start: 20061114, end: 20090916
  34. GOLIMUMAB [Suspect]
     Route: 058
     Dates: start: 20061114, end: 20090916
  35. GOLIMUMAB [Suspect]
     Route: 058
     Dates: start: 20061114, end: 20090916
  36. GOLIMUMAB [Suspect]
     Route: 058
     Dates: start: 20061114, end: 20090916
  37. GOLIMUMAB [Suspect]
     Route: 058
     Dates: start: 20061114, end: 20090916
  38. GOLIMUMAB [Suspect]
     Indication: RHEUMATOID ARTHRITIS
     Route: 058
     Dates: start: 20061114, end: 20090916
  39. METHOTREXATE [Suspect]
     Route: 048
  40. METHOTREXATE [Suspect]
     Route: 048
  41. METHOTREXATE [Suspect]
     Route: 048
  42. METHOTREXATE [Suspect]
     Route: 048
  43. METHOTREXATE [Suspect]
     Route: 048
  44. METHOTREXATE [Suspect]
     Route: 048
  45. METHOTREXATE [Suspect]
     Route: 048
  46. METHOTREXATE [Suspect]
     Indication: RHEUMATOID ARTHRITIS
     Route: 048
  47. METHOTREXATE [Concomitant]
     Route: 030
  48. FOLIC ACID [Concomitant]
     Route: 048
  49. PYRIDOXINE HYDROCHLORIDE [Concomitant]
     Route: 048
  50. ANAPRILIN [Concomitant]
     Route: 048
  51. MELOXICAM [Concomitant]
     Route: 048
  52. MELOXICAM [Concomitant]
     Indication: RHEUMATOID ARTHRITIS
     Route: 048
  53. PARACETAMOL [Concomitant]
     Indication: PLEURISY
     Route: 048
  54. RIFAMPICIN [Concomitant]
     Indication: PLEURISY
     Route: 048
  55. MOXIFLOXACIN HCL [Concomitant]
     Indication: PLEURISY
     Route: 048
  56. ISONIAZID [Concomitant]
     Indication: PLEURISY
     Route: 048
  57. HEPTRAL [Concomitant]
     Route: 048

REACTIONS (2)
  - PLEURISY [None]
  - TUBERCULOUS PLEURISY [None]
